FAERS Safety Report 19740435 (Version 7)
Quarter: 2024Q2

REPORT INFORMATION
  Report Type: Report from Study
  Country: AT (occurrence: AT)
  Receive Date: 20210824
  Receipt Date: 20240520
  Transmission Date: 20240717
  Serious: Yes (Death, Other)
  Sender: FDA-Public Use
  Company Number: AT-ROCHE-2850392

PATIENT
  Age: 50 Year
  Sex: Female
  Weight: 55 kg

DRUGS (23)
  1. BEVACIZUMAB [Suspect]
     Active Substance: BEVACIZUMAB
     Indication: Non-small cell lung cancer metastatic
     Dosage: 945 MG
     Route: 042
     Dates: start: 20201124
  2. BEVACIZUMAB [Suspect]
     Active Substance: BEVACIZUMAB
     Dosage: UNK
     Route: 065
     Dates: start: 20210401, end: 20210427
  3. CARBOPLATIN [Suspect]
     Active Substance: CARBOPLATIN
     Indication: Non-small cell lung cancer metastatic
     Dosage: 655 MG
     Route: 065
     Dates: start: 20201124
  4. PACLITAXEL [Suspect]
     Active Substance: PACLITAXEL
     Indication: Non-small cell lung cancer metastatic
     Dosage: 340 MG
     Route: 065
     Dates: start: 20201124
  5. ATEZOLIZUMAB [Suspect]
     Active Substance: ATEZOLIZUMAB
     Indication: Non-small cell lung cancer metastatic
     Dosage: 1200 MG EVERY 3 WEEKS
     Route: 041
     Dates: start: 20201124
  6. ATEZOLIZUMAB [Suspect]
     Active Substance: ATEZOLIZUMAB
     Dosage: 1200 MG, EVERY 3 WEEKS, ON 27APR21 SHE RECEIVED THE MOST RECENT DOSE OF ATEZOLIZUMAB PRIOR TO SAE.
     Route: 041
     Dates: start: 20210401, end: 20210427
  7. PREDNISOLONE [Concomitant]
     Active Substance: PREDNISOLONE
     Dosage: UNK
     Dates: start: 20210518
  8. PREDNISOLONE [Concomitant]
     Active Substance: PREDNISOLONE
     Dosage: UNK
     Dates: start: 20210422, end: 20210427
  9. CIPROFLOXACIN [Concomitant]
     Active Substance: CIPROFLOXACIN
     Dosage: UNK (0.5/DAY)
     Dates: start: 20210510, end: 202105
  10. DESLORATADINE [Concomitant]
     Active Substance: DESLORATADINE
     Dosage: UNK
  11. DIPHENHYDRAMINE HYDROCHLORIDE [Concomitant]
     Active Substance: DIPHENHYDRAMINE HYDROCHLORIDE
     Dosage: UNK
     Dates: start: 20201123
  12. DRONABINOL [Concomitant]
     Active Substance: DRONABINOL
     Dosage: UNK
     Dates: start: 202103
  13. LOPERAMIDE HYDROCHLORIDE [Concomitant]
     Active Substance: LOPERAMIDE HYDROCHLORIDE
     Dosage: UNK
     Dates: start: 20210427
  14. DIMETHINDENE [Concomitant]
     Active Substance: DIMETHINDENE
     Dosage: UNK
  15. DEXAMETHASONE [Concomitant]
     Active Substance: DEXAMETHASONE
     Dosage: UNK
     Dates: start: 20201122
  16. GILOTRIF [Concomitant]
     Active Substance: AFATINIB
     Dosage: UNK
     Dates: start: 20210723, end: 20211021
  17. GILOTRIF [Concomitant]
     Active Substance: AFATINIB
     Dosage: UNK
     Dates: start: 20210723, end: 20210909
  18. MOBOCERTINIB [Concomitant]
     Active Substance: MOBOCERTINIB
     Dosage: UNK
     Dates: start: 20211119, end: 20211205
  19. CYANOCOBALAMIN\PYRIDOXINE\THIAMINE [Concomitant]
     Active Substance: CYANOCOBALAMIN\PYRIDOXINE\THIAMINE
     Dosage: UNK
     Dates: start: 20201218
  20. PANTOPRAZOLE [Concomitant]
     Active Substance: PANTOPRAZOLE
     Dosage: UNK, 1X/DAY
     Dates: start: 20210422, end: 20210427
  21. PEGFILGRASTIM [Concomitant]
     Active Substance: PEGFILGRASTIM
     Dosage: UNK
     Dates: start: 20210114
  22. FILGRASTIM [Concomitant]
     Active Substance: FILGRASTIM
     Dosage: UNK
     Dates: start: 20210104
  23. RANITIDINE HYDROCHLORIDE [Concomitant]
     Active Substance: RANITIDINE HYDROCHLORIDE
     Dosage: UNK
     Dates: start: 20201123

REACTIONS (2)
  - Death [Fatal]
  - Immune-mediated enterocolitis [Recovering/Resolving]

NARRATIVE: CASE EVENT DATE: 20210518
